FAERS Safety Report 8464098-6 (Version None)
Quarter: 2012Q2

REPORT INFORMATION
  Report Type: 
  Country: None (occurrence: None)
  Receive Date: 20120625
  Receipt Date: 20120619
  Transmission Date: 20120825
  Serious: Yes (Hospitalization, Other)
  Sender: FDA-Public Use
  Company Number: US-PFIZER INC-2012132691

PATIENT
  Age: 45 Year
  Sex: Male

DRUGS (5)
  1. PHENOBARBITAL TAB [Concomitant]
     Dosage: UNK
  2. LYRICA [Suspect]
     Indication: CONVULSION
     Dosage: 100 MG, 2X/DAY
     Route: 048
     Dates: start: 20120411
  3. LYRICA [Suspect]
     Dosage: 200 MG, 2X/DAY
     Route: 048
     Dates: end: 20120321
  4. TEGRETOL [Concomitant]
     Dosage: UNK
  5. CARBAMAZEPINE [Concomitant]
     Dosage: 400 MG, DAILY

REACTIONS (5)
  - ACTIVITIES OF DAILY LIVING IMPAIRED [None]
  - ATAXIA [None]
  - ELECTROENCEPHALOGRAM ABNORMAL [None]
  - MUTISM [None]
  - STATUS EPILEPTICUS [None]
